FAERS Safety Report 5355109-5 (Version None)
Quarter: 2007Q2

REPORT INFORMATION
  Report Type: 
  Country: None (occurrence: None)
  Receive Date: 20070613
  Receipt Date: 20070605
  Transmission Date: 20071010
  Serious: Yes (Hospitalization)
  Sender: FDA-Public Use
  Company Number: PHRM2007FR01569

PATIENT
  Age: 76 Year
  Sex: Male
  Weight: 54 kg

DRUGS (6)
  1. TRIATEC [Suspect]
     Dosage: 1 DF, QD
     Route: 048
  2. RIVOTRIL [Concomitant]
     Dosage: 3 DF DAILY
     Route: 048
  3. TAREG [Suspect]
     Dosage: 80 MG, QD
     Route: 048
  4. MIXTARD HUMAN 70/30 [Concomitant]
  5. BUFLOMEDIL HYDROCHLORIDE [Concomitant]
     Dosage: 600 MG DAILY
     Route: 048
  6. PLAVIX [Concomitant]
     Dosage: 75 MG, QD
     Route: 048

REACTIONS (9)
  - ANOREXIA [None]
  - ASTHENIA [None]
  - BLOOD CREATININE INCREASED [None]
  - BLOOD UREA INCREASED [None]
  - DEHYDRATION [None]
  - DRUG INTERACTION [None]
  - GASTROENTERITIS [None]
  - HYPERKALAEMIA [None]
  - RENAL FAILURE ACUTE [None]
